FAERS Safety Report 8454925 (Version 2)
Quarter: 2012Q4

REPORT INFORMATION
  Report Type: 
  Country: SE (occurrence: SE)
  Receive Date: 20120312
  Receipt Date: 20120921
  Transmission Date: 20130627
  Serious: Yes (Death, Other)
  Sender: FDA-Public Use
  Company Number: SE-ASTRAZENECA-2012SE15489

PATIENT
  Age: 25 Year
  Sex: Female

DRUGS (3)
  1. SEROQUEL [Suspect]
     Route: 048
  2. UNSPECIFIED INGREDIENT [Suspect]
     Indication: BACK PAIN
     Route: 065
  3. LAMOTRIGIN [Concomitant]

REACTIONS (4)
  - Overdose [Fatal]
  - Suicidal ideation [Unknown]
  - Headache [Unknown]
  - Back pain [Unknown]
